FAERS Safety Report 8904260 (Version 1)
Quarter: 2012Q4

REPORT INFORMATION
  Report Type: 
  Country: BR (occurrence: BR)
  Receive Date: 20121113
  Receipt Date: 20121113
  Transmission Date: 20130627
  Serious: Yes (Hospitalization, Other)
  Sender: FDA-Public Use
  Company Number: PHHY2012BR103851

PATIENT
  Sex: Female
  Weight: 54 kg

DRUGS (6)
  1. DIOVAN HCT [Suspect]
     Indication: HYPERTENSION
     Dosage: 1 DF, (160/12.5 mg) daily
  2. VIVACOR [Concomitant]
     Indication: BLOOD CHOLESTEROL
     Dosage: 1 DF, at night
     Route: 048
  3. STRESSAN [Concomitant]
     Indication: EYE DISORDER
     Dosage: 1 DF, after lunch
     Route: 048
  4. ALENDRONATE [Concomitant]
     Indication: OSTEOPOROSIS
     Dosage: 1 DF, per week
     Route: 048
  5. CALCIUM + VITAMIN D [Concomitant]
     Indication: OSTEOPOROSIS
     Dosage: 1 DF, per week
     Route: 048
  6. AAS [Concomitant]
     Indication: ANTICOAGULANT THERAPY
     Dosage: 1 DF, after lunch
     Route: 048
     Dates: start: 20121019

REACTIONS (3)
  - Infarction [Recovered/Resolved]
  - Parkinson^s disease [Not Recovered/Not Resolved]
  - Hypotension [Recovering/Resolving]
